FAERS Safety Report 7526279-5 (Version None)
Quarter: 2011Q2

REPORT INFORMATION
  Report Type: 
  Country: None (occurrence: None)
  Receive Date: 20110606
  Receipt Date: 20110601
  Transmission Date: 20111010
  Serious: Yes (Other)
  Sender: FDA-Public Use
  Company Number: US-PFIZER INC-2011119178

PATIENT
  Sex: Male
  Weight: 82.086 kg

DRUGS (2)
  1. LISINOPRIL [Concomitant]
     Indication: HYPERTENSION
     Dosage: 40 MG, 1X/DAY
  2. ZOLOFT [Suspect]
     Indication: POST-TRAUMATIC STRESS DISORDER
     Dosage: UNK
     Route: 048
     Dates: start: 20110201, end: 20110201

REACTIONS (2)
  - CIRCULATORY COLLAPSE [None]
  - MALAISE [None]
